FAERS Safety Report 8443540-0 (Version None)
Quarter: 2012Q2

REPORT INFORMATION
  Report Type: 
  Country: None (occurrence: None)
  Receive Date: 20120618
  Receipt Date: 20120614
  Transmission Date: 20120825
  Serious: No
  Sender: FDA-Public Use
  Company Number: US-PFIZER INC-2012145126

PATIENT
  Sex: Male
  Weight: 118 kg

DRUGS (5)
  1. CHANTIX [Suspect]
     Indication: SMOKING CESSATION THERAPY
     Dosage: 1 MG, 2X/DAY
     Dates: start: 20120601
  2. VALIUM [Concomitant]
     Dosage: 10 MG, 3X/DAY
  3. CIALIS [Concomitant]
     Indication: ERECTILE DYSFUNCTION
     Dosage: 5 MG, DAILY
  4. VICODIN [Concomitant]
     Indication: INTERVERTEBRAL DISC PROTRUSION
     Dosage: 10 MG, 4X/DAY
  5. PRAVASTATIN SODIUM [Suspect]
     Indication: BLOOD PRESSURE ABNORMAL
     Dosage: 40 MG, 2X/DAY

REACTIONS (2)
  - HEADACHE [None]
  - SOMNOLENCE [None]
